FAERS Safety Report 7990951-3 (Version None)
Quarter: 2011Q4

REPORT INFORMATION
  Report Type: 
  Country: None (occurrence: None)
  Receive Date: 20111215
  Receipt Date: 20111206
  Transmission Date: 20120403
  Serious: Yes (Life-Threatening)
  Sender: FDA-Public Use
  Company Number: TCI2011A05864

PATIENT
  Age: 58 Year
  Sex: Male

DRUGS (9)
  1. LANSOPRAZOLE [Suspect]
     Indication: DUODENAL ULCER
     Dosage: 30 MG (30 MG, 1 IN 1 D)
     Route: 048
     Dates: start: 20110730, end: 20110802
  2. ARTFED (MALTOSE, SODIUM ACETATE, POTASSIUM CHLORIDE, SODIUM CHLORIDE, [Concomitant]
  3. DIAZEPAM [Concomitant]
  4. NOVORIN R (XYLOMETAZOLINE HYDROCHLORIDE) [Concomitant]
  5. ALEVIATIN (PHENYTOIN SODIUM) [Concomitant]
  6. LACTEC D(GLUCOSE, SODIUM LACTATE, POTASSIUM CHLORIDE, CALCIUM CHLORIDE [Concomitant]
  7. HYDANTAL TAB [Suspect]
     Indication: CONVULSION
     Dosage: 6 TAB. (2 TAB., 3 IN 1 D)
     Route: 048
     Dates: start: 20110730, end: 20110803
  8. POTACOL-R(MALTOSE, SODIUM LACTATE, POTASSIUM CHLORIDE, SODIUM CHLORIDE [Concomitant]
  9. DIPRIVAN [Concomitant]

REACTIONS (2)
  - BLOOD CREATINE PHOSPHOKINASE INCREASED [None]
  - RHABDOMYOLYSIS [None]
